FAERS Safety Report 20292555 (Version 2)
Quarter: 2022Q1

REPORT INFORMATION
  Report Type: Report from Study
  Country: PH (occurrence: PH)
  Receive Date: 20220104
  Receipt Date: 20220122
  Transmission Date: 20220424
  Serious: Yes (Other)
  Sender: FDA-Public Use
  Company Number: PH-JNJFOC-20211229014

PATIENT
  Age: 6 Decade
  Sex: Male

DRUGS (4)
  1. RIBOMUSTIN [Suspect]
     Active Substance: BENDAMUSTINE HYDROCHLORIDE
     Indication: Non-Hodgkin^s lymphoma
     Dosage: (1 TIME EVERY 21 DAYS FOR THE FIRST FOUR CYCLES)
     Route: 042
     Dates: start: 202101
  2. RIBOMUSTIN [Suspect]
     Active Substance: BENDAMUSTINE HYDROCHLORIDE
     Dosage: (FOR 2 CYCLES 1 TIME EVERY 28 DAYS)
     Route: 042
  3. AMLODIPINE [Concomitant]
     Active Substance: AMLODIPINE BESYLATE
     Indication: Hypertension
     Dosage: 40 MILLIGRAM DAILY;
     Route: 048
  4. TELMISARTAN [Concomitant]
     Active Substance: TELMISARTAN
     Indication: Hypertension
     Dosage: 5 MILLIGRAM DAILY;
     Route: 048

REACTIONS (5)
  - Malignant neoplasm progression [Unknown]
  - Gastrointestinal disorder [Unknown]
  - Skin lesion [Unknown]
  - Myalgia [Unknown]
  - Drug ineffective [Unknown]
